FAERS Safety Report 8870204 (Version 1)
Quarter: 2012Q4

REPORT INFORMATION
  Report Type: Spontaneous
  Country: US (occurrence: None)
  Receive Date: 20121025
  Receipt Date: 20121025
  Transmission Date: 20130627
  Serious: Yes (Hospitalization)
  Sender: FDA-Public Use
  Company Number: None

PATIENT
  Age: 28 Year
  Sex: Male
  Weight: 85.5 kg

DRUGS (1)
  1. ARMADA SCREW SYSTEM NUVASIVE [Suspect]

REACTIONS (3)
  - Device breakage [None]
  - Medical device complication [None]
  - Pseudarthrosis [None]
